FAERS Safety Report 9155385 (Version 1)
Quarter: 2013Q1

REPORT INFORMATION
  Report Type: Spontaneous
  Country: CA (occurrence: CA)
  Receive Date: 20130311
  Receipt Date: 20130311
  Transmission Date: 20140127
  Serious: Yes (Hospitalization, Other)
  Sender: FDA-Public Use
  Company Number: CA-ROCHE-1196863

PATIENT
  Age: 66 Year
  Sex: Male

DRUGS (10)
  1. PEGASYS [Suspect]
     Indication: HEPATITIS C
     Route: 065
     Dates: start: 20121030, end: 20130122
  2. COPEGUS [Suspect]
     Indication: HEPATITIS C
     Route: 065
     Dates: start: 20121030, end: 20130122
  3. TELAPREVIR [Suspect]
     Indication: HEPATITIS C
     Route: 065
     Dates: start: 20121030, end: 20130115
  4. NORVASC [Concomitant]
     Route: 065
  5. GLUCONORM [Concomitant]
     Route: 065
  6. HYDROCHLOROTHIAZIDE [Concomitant]
     Route: 065
  7. METFORMIN [Concomitant]
     Route: 065
  8. SIMVASTATIN [Concomitant]
     Route: 065
  9. ASPIRIN [Concomitant]
     Route: 065
  10. RAMIPRIL [Concomitant]
     Route: 065

REACTIONS (8)
  - Activities of daily living impaired [Not Recovered/Not Resolved]
  - Hypotension [Recovered/Resolved]
  - Anaemia [Recovered/Resolved]
  - Fall [Unknown]
  - Rectal haemorrhage [Unknown]
  - Prostate cancer [Not Recovered/Not Resolved]
  - Lumbar vertebral fracture [Unknown]
  - Dyspepsia [Unknown]
